FAERS Safety Report 6476720-4 (Version None)
Quarter: 2009Q4

REPORT INFORMATION
  Report Type: 
  Country: None (occurrence: None)
  Receive Date: 20091207
  Receipt Date: 20091126
  Transmission Date: 20100525
  Serious: Yes (Other)
  Sender: FDA-Public Use
  Company Number: PHNU2007DE03386

PATIENT
  Age: 50 Year
  Sex: Female

DRUGS (2)
  1. DIOVAN HCT [Suspect]
     Indication: HYPERTENSION
     Dosage: 160/12.5 MG
     Dates: end: 20080801
  2. DIOVAN HCT [Suspect]
     Indication: HYPERTENSION
     Dates: start: 20060101

REACTIONS (10)
  - ARTHROPATHY [None]
  - FREQUENT BOWEL MOVEMENTS [None]
  - LIMB DISCOMFORT [None]
  - MUSCLE ATROPHY [None]
  - MUSCULAR DYSTROPHY [None]
  - MUSCULAR WEAKNESS [None]
  - PHARYNGEAL OEDEMA [None]
  - POLLAKIURIA [None]
  - WALKING AID USER [None]
  - WEIGHT DECREASED [None]
